FAERS Safety Report 7554013-1 (Version None)
Quarter: 2011Q2

REPORT INFORMATION
  Report Type: 
  Country: None (occurrence: None)
  Receive Date: 20110614
  Receipt Date: 20110614
  Transmission Date: 20111010
  Serious: Yes (Other)
  Sender: FDA-Public Use
  Company Number: None

PATIENT
  Age: 37 Year
  Sex: Female
  Weight: 74.3899 kg

DRUGS (1)
  1. BACTRIM DS [Suspect]
     Indication: SINUSITIS
     Dosage: 1 EVERY 12HRS PO
     Route: 048
     Dates: start: 20110604, end: 20110612

REACTIONS (11)
  - URTICARIA [None]
  - PHARYNGEAL ULCERATION [None]
  - CHILLS [None]
  - LIP SWELLING [None]
  - FEELING HOT [None]
  - SWOLLEN TONGUE [None]
  - RASH GENERALISED [None]
  - AURICULAR SWELLING [None]
  - PRURITUS [None]
  - PYREXIA [None]
  - SWELLING FACE [None]
